FAERS Safety Report 16154893 (Version 1)
Quarter: 2019Q2

REPORT INFORMATION
  Report Type: Spontaneous
  Country: US (occurrence: US)
  Receive Date: 20190403
  Receipt Date: 20190403
  Transmission Date: 20190711
  Serious: No
  Sender: FDA-Public Use
  Company Number: US-EISAI MEDICAL RESEARCH-EC-2019-054266

PATIENT
  Age: 69 Year
  Sex: Female

DRUGS (5)
  1. CLOBAZAM. [Concomitant]
     Active Substance: CLOBAZAM
     Indication: SEIZURE
     Dosage: DOSE AND FREQUENCY NOT PROVIDED
     Dates: start: 201903
  2. KEPPRA [Concomitant]
     Active Substance: LEVETIRACETAM
     Indication: SEIZURE
     Dosage: DOSE AND FREQUENCY NOT PROVIDED
  3. FYCOMPA [Suspect]
     Active Substance: PERAMPANEL
     Indication: SEIZURE
     Route: 048
     Dates: start: 201810
  4. FYCOMPA [Suspect]
     Active Substance: PERAMPANEL
     Route: 048
  5. FYCOMPA [Suspect]
     Active Substance: PERAMPANEL
     Dosage: UPTITRATION
     Route: 048

REACTIONS (2)
  - Syncope [Unknown]
  - Disorientation [Unknown]

NARRATIVE: CASE EVENT DATE: 201810
